FAERS Safety Report 19410403 (Version 1)
Quarter: 2021Q2

REPORT INFORMATION
  Report Type: Spontaneous
  Country: US (occurrence: US)
  Receive Date: 20210611
  Receipt Date: 20210611
  Transmission Date: 20210717
  Serious: No
  Sender: FDA-Public Use
  Company Number: None

PATIENT
  Age: 41 Year
  Sex: Female
  Weight: 108.9 kg

DRUGS (13)
  1. ZYRTEC [Concomitant]
     Active Substance: CETIRIZINE HYDROCHLORIDE
  2. PHENTERMINE. [Concomitant]
     Active Substance: PHENTERMINE
  3. FOLIC ACID. [Concomitant]
     Active Substance: FOLIC ACID
  4. YAZ [Concomitant]
     Active Substance: DROSPIRENONE\ETHINYL ESTRADIOL
  5. VITAMIN C [Concomitant]
     Active Substance: ASCORBIC ACID
  6. TYLENOL [Concomitant]
     Active Substance: ACETAMINOPHEN
  7. LEVOTHYROXYN [Concomitant]
  8. HUMIRA [Suspect]
     Active Substance: ADALIMUMAB
     Indication: PSORIATIC ARTHROPATHY
     Dosage: ?          QUANTITY:1 INJECTION(S);OTHER FREQUENCY:EVERY 2 WEEKS;?
     Route: 058
     Dates: start: 20210529, end: 20210529
  9. SYNTHROID [Concomitant]
     Active Substance: LEVOTHYROXINE SODIUM
  10. MULTIVITAMIN [Concomitant]
     Active Substance: VITAMINS
  11. METHOTREXATE. [Concomitant]
     Active Substance: METHOTREXATE
  12. VITAMIN D [Concomitant]
     Active Substance: VITAMIN D NOS
  13. ADVIL [Concomitant]
     Active Substance: IBUPROFEN

REACTIONS (8)
  - Injection site erythema [None]
  - Injection site warmth [None]
  - Injection site rash [None]
  - Headache [None]
  - Erythema [None]
  - Rash pruritic [None]
  - Dizziness [None]
  - Throat tightness [None]

NARRATIVE: CASE EVENT DATE: 20210608
